FAERS Safety Report 9772205 (Version 2)
Quarter: 2013Q4

REPORT INFORMATION
  Report Type: Report from Study
  Country: US (occurrence: US)
  Receive Date: 20131219
  Receipt Date: 20131219
  Transmission Date: 20140711
  Serious: Yes (Hospitalization)
  Sender: FDA-Public Use
  Company Number: US-SA-2013SA119022

PATIENT
  Age: 49 Year
  Sex: Male

DRUGS (5)
  1. AUBAGIO [Suspect]
     Indication: MULTIPLE SCLEROSIS
     Route: 048
     Dates: start: 20131007, end: 20131019
  2. AUBAGIO [Suspect]
     Indication: MULTIPLE SCLEROSIS
     Route: 048
     Dates: start: 20131108, end: 20131201
  3. SEROQUEL [Concomitant]
     Dates: end: 20131201
  4. PROZAC [Concomitant]
     Dates: end: 20131201
  5. NEURONTIN [Concomitant]
     Dates: end: 20131201

REACTIONS (5)
  - Convulsion [Unknown]
  - Cerebrovascular accident [Unknown]
  - Nausea [Not Recovered/Not Resolved]
  - Diarrhoea [Not Recovered/Not Resolved]
  - Vomiting [Unknown]
